FAERS Safety Report 4993855-3 (Version None)
Quarter: 2006Q2

REPORT INFORMATION
  Report Type: 
  Country: None (occurrence: None)
  Receive Date: 20060505
  Receipt Date: 20051102
  Transmission Date: 20061013
  Serious: Yes (Hospitalization, Disabling)
  Sender: FDA-Public Use
  Company Number: US-MERCK-0511USA00640

PATIENT
  Age: 55 Year
  Sex: Female
  Weight: 116 kg

DRUGS (20)
  1. VIOXX [Suspect]
     Indication: ARTHRITIS
     Route: 048
     Dates: start: 20020214, end: 20040701
  2. VIOXX [Suspect]
     Indication: BACK PAIN
     Route: 048
     Dates: start: 20020214, end: 20040701
  3. ZOLOFT [Concomitant]
     Indication: DEPRESSION
     Route: 065
     Dates: start: 20030101
  4. ZOLOFT [Concomitant]
     Indication: PANIC ATTACK
     Route: 065
     Dates: start: 20030101
  5. PREVACID [Concomitant]
     Indication: GASTROOESOPHAGEAL REFLUX DISEASE
     Route: 065
  6. ZYRTEC [Concomitant]
     Indication: HYPERSENSITIVITY
     Route: 065
  7. ULTRAM [Concomitant]
     Indication: PAIN
     Route: 065
     Dates: start: 20021212, end: 20040330
  8. DITROPAN [Concomitant]
     Route: 065
  9. ATACAND [Concomitant]
     Route: 065
  10. CIMETIDINE [Concomitant]
     Route: 065
  11. PROVENTIL [Concomitant]
     Route: 065
  12. ADVAIR DISKUS 100/50 [Concomitant]
     Indication: HYPERSENSITIVITY
     Route: 065
  13. CELEBREX [Concomitant]
     Route: 065
     Dates: start: 20040330
  14. LASIX [Concomitant]
     Indication: SWELLING
     Route: 065
     Dates: start: 20010101
  15. BENICAR [Concomitant]
     Indication: HYPERTENSION
     Route: 065
     Dates: start: 20030801, end: 20050901
  16. BENICAR [Concomitant]
     Indication: FLUID RETENTION
     Route: 065
     Dates: start: 20030801, end: 20050901
  17. PLAVIX [Concomitant]
     Route: 065
     Dates: start: 20010901, end: 20021101
  18. LIPITOR [Concomitant]
     Route: 065
     Dates: start: 20030801, end: 20050901
  19. PAXIL [Concomitant]
     Indication: DEPRESSION
     Route: 065
     Dates: start: 20010601, end: 20030101
  20. ALBUTEROL [Concomitant]
     Route: 065

REACTIONS (16)
  - ANXIETY DISORDER [None]
  - ARTHRALGIA [None]
  - BLOOD CHOLESTEROL INCREASED [None]
  - BLOOD TRIGLYCERIDES INCREASED [None]
  - CORONARY ARTERY DISEASE [None]
  - DEEP VEIN THROMBOSIS [None]
  - DEPRESSION [None]
  - DYSLIPIDAEMIA [None]
  - DYSPEPSIA [None]
  - GASTROENTERITIS [None]
  - JOINT EFFUSION [None]
  - LUNG INFECTION [None]
  - OEDEMA PERIPHERAL [None]
  - OSTEOARTHRITIS [None]
  - PANIC ATTACK [None]
  - THROMBOSIS [None]
